FAERS Safety Report 17615547 (Version 1)
Quarter: 2020Q2

REPORT INFORMATION
  Report Type: Spontaneous
  Country: HR (occurrence: HR)
  Receive Date: 20200402
  Receipt Date: 20200402
  Transmission Date: 20200713
  Serious: Yes (Hospitalization)
  Sender: FDA-Public Use
  Company Number: HR-PFIZER INC-2020135054

PATIENT
  Age: 18 Year
  Sex: Male
  Weight: 60 kg

DRUGS (4)
  1. HERPLEXIM [Concomitant]
     Active Substance: ACYCLOVIR
     Indication: APHTHOUS ULCER
     Dosage: 1600 MG, 1X/DAY
     Route: 048
     Dates: start: 20200306
  2. SALOFALK [MESALAZINE] [Suspect]
     Active Substance: MESALAMINE
     Dosage: 4000 MG, 1X/DAY
     Route: 048
     Dates: start: 20200228
  3. SALAZOPYRIN EN [Suspect]
     Active Substance: SULFASALAZINE
     Indication: COLITIS ULCERATIVE
     Dosage: 1000 MG, 1X/DAY
     Route: 048
     Dates: start: 202001
  4. SUMAMED [Concomitant]
     Active Substance: AZITHROMYCIN ANHYDROUS
     Indication: BRONCHITIS
     Dosage: 500 MG, UNK
     Route: 048
     Dates: start: 20200306, end: 20200308

REACTIONS (6)
  - Aphthous ulcer [Not Recovered/Not Resolved]
  - Cough [Not Recovered/Not Resolved]
  - Conjunctivitis [Not Recovered/Not Resolved]
  - Body temperature increased [Not Recovered/Not Resolved]
  - C-reactive protein increased [Not Recovered/Not Resolved]
  - Transaminases increased [Not Recovered/Not Resolved]

NARRATIVE: CASE EVENT DATE: 20200309
